FAERS Safety Report 8334240-6 (Version None)
Quarter: 2012Q2

REPORT INFORMATION
  Report Type: 
  Country: None (occurrence: None)
  Receive Date: 20120503
  Receipt Date: 20120430
  Transmission Date: 20120825
  Serious: Yes (Other)
  Sender: FDA-Public Use
  Company Number: GB-GLAXOSMITHKLINE-B0798931A

PATIENT
  Age: 68 Year
  Sex: Female

DRUGS (1)
  1. ALBUTEROL [Suspect]
     Dates: start: 20120410, end: 20120419

REACTIONS (4)
  - HEART RATE INCREASED [None]
  - TREMOR [None]
  - DYSPNOEA [None]
  - PARAESTHESIA ORAL [None]
